FAERS Safety Report 21966563 (Version 1)
Quarter: 2023Q1

REPORT INFORMATION
  Report Type: Spontaneous
  Country: IT (occurrence: IT)
  Receive Date: 20230208
  Receipt Date: 20230208
  Transmission Date: 20230417
  Serious: Yes (Other)
  Sender: FDA-Public Use
  Company Number: None

PATIENT
  Age: 74 Year
  Sex: Male
  Weight: 70 kg

DRUGS (7)
  1. FLUOROURACIL [Suspect]
     Active Substance: FLUOROURACIL
     Indication: Colon cancer
     Route: 042
     Dates: start: 20220225, end: 20220315
  2. IRINOTECAN [Suspect]
     Active Substance: IRINOTECAN
     Indication: Colon cancer
     Route: 042
     Dates: start: 20220225, end: 20220315
  3. BEVACIZUMAB [Suspect]
     Active Substance: BEVACIZUMAB
     Indication: Colon cancer
     Route: 042
     Dates: start: 20220225, end: 20220315
  4. LEVOLEUCOVORIN [Concomitant]
     Active Substance: LEVOLEUCOVORIN
     Indication: Product used for unknown indication
     Dosage: UNKNOWN
     Route: 065
  5. OLANZAPINE [Concomitant]
     Active Substance: OLANZAPINE
     Indication: Product used for unknown indication
     Dosage: UNKNOWN
     Route: 065
  6. ANAFRANIL [Concomitant]
     Active Substance: CLOMIPRAMINE HYDROCHLORIDE
     Indication: Product used for unknown indication
     Dosage: UNKNOWN
     Route: 065
  7. ZESTRIL [Concomitant]
     Active Substance: LISINOPRIL
     Indication: Product used for unknown indication
     Dosage: UNKNOWN
     Route: 065

REACTIONS (4)
  - Diarrhoea [Not Recovered/Not Resolved]
  - Asthenia [Recovering/Resolving]
  - Neutropenia [Not Recovered/Not Resolved]
  - Tongue blistering [Recovered/Resolved]

NARRATIVE: CASE EVENT DATE: 20220227
